FAERS Safety Report 7049505-8 (Version None)
Quarter: 2010Q4

REPORT INFORMATION
  Report Type: 
  Country: None (occurrence: None)
  Receive Date: 20101013
  Receipt Date: 20100927
  Transmission Date: 20110411
  Serious: Yes (Other)
  Sender: FDA-Public Use
  Company Number: ACO_02414_2010

PATIENT
  Sex: Male
  Weight: 77.1115 kg

DRUGS (5)
  1. AMPYRA [Suspect]
     Indication: GAIT DISTURBANCE
     Dosage: (10 MG BID ORAL)
     Route: 048
     Dates: start: 20100624, end: 20100924
  2. COPAXONE [Concomitant]
  3. BENICAR [Concomitant]
  4. EFFEXOR [Concomitant]
  5. TRILIPIX [Concomitant]

REACTIONS (5)
  - ERYTHEMA [None]
  - HYPERSENSITIVITY [None]
  - PARAESTHESIA [None]
  - RASH PRURITIC [None]
  - SWELLING [None]
